FAERS Safety Report 22053805 (Version 3)
Quarter: 2023Q2

REPORT INFORMATION
  Report Type: Report from Study
  Country: US (occurrence: US)
  Receive Date: 20230302
  Receipt Date: 20230430
  Transmission Date: 20230722
  Serious: No
  Sender: FDA-Public Use
  Company Number: US-002147023-NVSC2023US048324

PATIENT
  Sex: Female

DRUGS (1)
  1. KISQALI [Suspect]
     Active Substance: RIBOCICLIB
     Indication: Breast cancer
     Dosage: 600 MG, QD (ONCE DAILY)
     Route: 048
     Dates: start: 20230213

REACTIONS (3)
  - Abdominal distension [Recovered/Resolved]
  - Full blood count decreased [Recovered/Resolved]
  - Bone pain [Unknown]
